FAERS Safety Report 5973004-5 (Version None)
Quarter: 2008Q4

REPORT INFORMATION
  Report Type: 
  Country: None (occurrence: None)
  Receive Date: 20081201
  Receipt Date: 20081126
  Transmission Date: 20090506
  Serious: Yes (Death)
  Sender: FDA-Public Use
  Company Number: PHBS2008IE05654

PATIENT
  Sex: Male

DRUGS (3)
  1. CYCLOSPORINE [Suspect]
     Indication: COLITIS ULCERATIVE
     Dosage: 2 MG/KG, BID
     Route: 042
  2. CYCLOSPORINE [Suspect]
     Dosage: 8 MG/KG/DAY
  3. ANTINEOPLASTIC AND IMMUNOMODULATING AGENTS [Concomitant]
     Indication: COLITIS ULCERATIVE

REACTIONS (3)
  - COLECTOMY [None]
  - COLITIS ULCERATIVE [None]
  - TREATMENT FAILURE [None]
